FAERS Safety Report 9929961 (Version 6)
Quarter: 2016Q3

REPORT INFORMATION
  Report Type: Report from Study
  Country: FR (occurrence: FR)
  Receive Date: 20140227
  Receipt Date: 20160923
  Transmission Date: 20161109
  Serious: Yes (Hospitalization)
  Sender: FDA-Public Use
  Company Number: PHHO2014FR001984

PATIENT
  Age: 74 Year
  Sex: Male
  Weight: 71.8 kg

DRUGS (5)
  1. LEVOTHYROXIN [Concomitant]
     Active Substance: LEVOTHYROXINE
     Dosage: 200 UG, PER DAY
     Dates: start: 2006
  2. PREGABALIN. [Concomitant]
     Active Substance: PREGABALIN
     Dosage: 375 MG, PER DAY
     Dates: start: 201312
  3. CANDESARTAN CILEXETIL. [Suspect]
     Active Substance: CANDESARTAN CILEXETIL
     Indication: HYPERTENSION
     Dosage: 16 MG, PER DAY
     Route: 065
     Dates: start: 2009, end: 20140204
  4. PARACETAMOL CODEINE [Concomitant]
     Active Substance: ACETAMINOPHEN\CODEINE PHOSPHATE
     Dosage: 2 G, PER DAY
     Dates: start: 201312
  5. BKM120 [Suspect]
     Active Substance: BUPARLISIB HYDROCHLORIDE
     Indication: HEAD AND NECK CANCER METASTATIC
     Dosage: 100 MG, QD
     Route: 048
     Dates: start: 20140129, end: 20140202

REACTIONS (2)
  - Hypotension [Recovered/Resolved]
  - Dehydration [Recovered/Resolved]

NARRATIVE: CASE EVENT DATE: 20140203
